FAERS Safety Report 5643950-0 (Version None)
Quarter: 2008Q1

REPORT INFORMATION
  Report Type: 
  Country: None (occurrence: None)
  Receive Date: 20080226
  Receipt Date: 20080220
  Transmission Date: 20080703
  Serious: Yes (Other)
  Sender: FDA-Public Use
  Company Number: 2007US001203

PATIENT
  Age: 64 Year
  Sex: Female

DRUGS (1)
  1. PROTOPIC [Suspect]
     Indication: SEBORRHOEIC DERMATITIS
     Dosage: 0.1%, TOPICAL
     Route: 061
     Dates: start: 20011201

REACTIONS (2)
  - LIP NEOPLASM MALIGNANT STAGE UNSPECIFIED [None]
  - SKIN ULCER [None]
